FAERS Safety Report 7341046 (Version 13)
Quarter: 2014Q2

REPORT INFORMATION
  Report Type: Spontaneous
  Country: CA (occurrence: CA)
  Receive Date: 20100401
  Receipt Date: 20140519
  Transmission Date: 20141212
  Serious: Yes (Other)
  Sender: FDA-Public Use
  Company Number: CA-ROCHE-GNE299813

PATIENT
  Age: 66 Year
  Sex: Male
  Weight: 96 kg

DRUGS (6)
  1. XOLAIR [Suspect]
     Indication: CHRONIC OBSTRUCTIVE PULMONARY DISEASE
     Route: 058
     Dates: start: 20100201
  2. XOLAIR [Suspect]
     Indication: OFF LABEL USE
     Dosage: 375 MG BIW
     Route: 058
     Dates: start: 20100317
  3. XOLAIR [Suspect]
     Indication: ASTHMA
     Dosage: 375MG BIW
     Route: 058
     Dates: start: 20100414, end: 201304
  4. VENTOLIN [Concomitant]
     Indication: PRODUCT USED FOR UNKNOWN INDICATION
     Route: 065
  5. SINGULAIR [Concomitant]
     Route: 065
  6. SYMBICORT [Concomitant]

REACTIONS (14)
  - Lung infection [Unknown]
  - Hypertension [Unknown]
  - Chest pain [Unknown]
  - Heart rate irregular [Unknown]
  - Seasonal allergy [Unknown]
  - Weight decreased [Unknown]
  - Nasopharyngitis [Unknown]
  - Oropharyngeal pain [Unknown]
  - Gastrooesophageal reflux disease [Unknown]
  - Insomnia [Unknown]
  - Abdominal pain upper [Unknown]
  - Nausea [Unknown]
  - Drug ineffective [Unknown]
  - Weight increased [Unknown]
